FAERS Safety Report 8552095 (Version 5)
Quarter: 2013Q1

REPORT INFORMATION
  Report Type: Report from Study
  Country: TW (occurrence: TW)
  Receive Date: 20120508
  Receipt Date: 20130228
  Transmission Date: 20140127
  Serious: Yes (Hospitalization)
  Sender: FDA-Public Use
  Company Number: TW-ROCHE-1066447

PATIENT
  Age: 59 Year
  Sex: Female
  Weight: 50.35 kg

DRUGS (6)
  1. PEG-INTERFERON ALFA 2A [Suspect]
     Indication: HEPATITIS C
     Route: 058
     Dates: start: 20110923
  2. RIBAVIRIN [Suspect]
     Indication: HEPATITIS C
     Route: 065
     Dates: start: 20110923, end: 20111031
  3. ALISPORIVIR [Suspect]
     Indication: HEPATITIS C
     Route: 048
     Dates: start: 20110923
  4. PARACETAMOL [Concomitant]
     Route: 065
     Dates: start: 20110930, end: 20111112
  5. ESTAZOLAM [Concomitant]
     Route: 065
     Dates: start: 20110930, end: 20111112
  6. METOCLOPRAMIDE [Concomitant]
     Route: 065
     Dates: start: 20111109

REACTIONS (3)
  - Vertigo [Recovered/Resolved]
  - Anaemia [Recovered/Resolved]
  - Dizziness [Recovered/Resolved]
